FAERS Safety Report 9170504 (Version 1)
Quarter: 2013Q1

REPORT INFORMATION
  Report Type: Report from Study
  Country: CA (occurrence: CA)
  Receive Date: 20130319
  Receipt Date: 20130319
  Transmission Date: 20140127
  Serious: Yes (Hospitalization)
  Sender: FDA-Public Use
  Company Number: CA-JNJFOC-20130300202

PATIENT
  Sex: Female
  Weight: 92.5 kg

DRUGS (8)
  1. REMICADE [Suspect]
     Indication: CROHN^S DISEASE
     Dosage: LAST INFUSION
     Route: 042
     Dates: start: 20130122
  2. REMICADE [Suspect]
     Indication: CROHN^S DISEASE
     Route: 042
     Dates: start: 20120801
  3. FOLIC ACID [Concomitant]
     Route: 065
  4. ENTOCORT [Concomitant]
     Route: 065
  5. LOMOTIL [Concomitant]
     Route: 065
  6. CALCIUM [Concomitant]
     Route: 065
  7. VITAMIN D [Concomitant]
     Route: 065
  8. METHOTREXATE [Concomitant]
     Route: 065

REACTIONS (4)
  - Abdominal pain [Recovered/Resolved]
  - Candida infection [Recovering/Resolving]
  - Rash [Recovering/Resolving]
  - Rash pustular [Recovering/Resolving]
